FAERS Safety Report 17014036 (Version 4)
Quarter: 2020Q1

REPORT INFORMATION
  Report Type: Spontaneous
  Country: GB (occurrence: GB)
  Receive Date: 20191111
  Receipt Date: 20200304
  Transmission Date: 20200409
  Serious: Yes (Disabling)
  Sender: FDA-Public Use
  Company Number: GB-DENTSPLY-2019SCDP000612

PATIENT
  Age: 76 Year
  Sex: Female

DRUGS (5)
  1. BISOPROLOL [Concomitant]
     Active Substance: BISOPROLOL
     Indication: HYPERTENSION
     Dosage: 5 MILLIGRAM
     Dates: start: 20190516
  2. MEPIVACAINE HCL [Suspect]
     Active Substance: MEPIVACAINE HYDROCHLORIDE
     Indication: TOOTH REPAIR
     Dosage: 2.2 MILLILITER, TOTAL, SOLUTION FOR INJECTION
     Route: 002
     Dates: start: 20191003, end: 20191003
  3. COCODAMOL [Concomitant]
     Active Substance: ACETAMINOPHEN\CODEINE PHOSPHATE
     Indication: PRODUCT USED FOR UNKNOWN INDICATION
     Dosage: 8 MILLIGRAM, 2 DF AT MORNING AND 2 DF AT NIGHT
     Dates: start: 20190516
  4. LOSARTAN. [Concomitant]
     Active Substance: LOSARTAN
     Indication: HYPERTENSION
     Dosage: 25 MILLIGRAM
     Dates: start: 20190516
  5. INDAPAMIDE. [Concomitant]
     Active Substance: INDAPAMIDE
     Indication: HYPERTENSION
     Dosage: 8 MILLIGRAM
     Dates: start: 20190516

REACTIONS (3)
  - Contusion [None]
  - Haematoma [None]
  - Swelling [Unknown]

NARRATIVE: CASE EVENT DATE: 20191003
